FAERS Safety Report 10015898 (Version 3)
Quarter: 2014Q1

REPORT INFORMATION
  Report Type: Not Available
  Country: US (occurrence: US)
  Receive Date: 20140317
  Receipt Date: 20140321
  Transmission Date: 20141002
  Serious: Yes (Hospitalization)
  Sender: FDA-Public Use
  Company Number: US-ONYX-2014-0278

PATIENT
  Age: 50 Year
  Sex: Male

DRUGS (7)
  1. KYPROLIS [Suspect]
     Indication: PLASMA CELL MYELOMA
     Route: 042
     Dates: start: 201312, end: 20140221
  2. POMALYST [Concomitant]
     Indication: PLASMA CELL MYELOMA
  3. FOLIC ACID [Concomitant]
     Indication: VITAMIN C
  4. VERAPAMIL [Concomitant]
     Indication: HYPERTENSION
  5. INTEGRA [Concomitant]
     Indication: BLOOD IRON
  6. VITAMIN B [Concomitant]
     Indication: VITAMIN SUPPLEMENTATION
  7. GREEN TEA [Concomitant]
     Indication: NUTRITIONAL SUPPLEMENTATION

REACTIONS (3)
  - Pyrexia [Recovered/Resolved]
  - Haemoglobin decreased [Unknown]
  - Haemoglobin decreased [Unknown]
